FAERS Safety Report 10519773 (Version 1)
Quarter: 2014Q4

REPORT INFORMATION
  Report Type: Spontaneous
  Country: US (occurrence: None)
  Receive Date: 20141014
  Receipt Date: 20141014
  Transmission Date: 20150528
  Serious: Yes (Other)
  Sender: FDA-Public Use
  Company Number: None

PATIENT
  Age: 48 Year
  Sex: Male
  Weight: 121.2 kg

DRUGS (1)
  1. PYRIDOSTIGMINE [Suspect]
     Active Substance: PYRIDOSTIGMINE
     Dates: start: 20140807

REACTIONS (13)
  - Nausea [None]
  - Vomiting [None]
  - Diarrhoea [None]
  - Paranoia [None]
  - Pancreatic carcinoma [None]
  - Psychotic disorder [None]
  - Faecal incontinence [None]
  - Hypoaesthesia [None]
  - Suicidal ideation [None]
  - Abdominal pain [None]
  - Delusion [None]
  - Hyperhidrosis [None]
  - Temperature regulation disorder [None]

NARRATIVE: CASE EVENT DATE: 20140807
